FAERS Safety Report 19660390 (Version 2)
Quarter: 2022Q2

REPORT INFORMATION
  Report Type: Spontaneous
  Country: FR (occurrence: FR)
  Receive Date: 20210805
  Receipt Date: 20220525
  Transmission Date: 20220721
  Serious: Yes (Hospitalization, Other)
  Sender: FDA-Public Use
  Company Number: None

PATIENT

DRUGS (5)
  1. LAMICTAL [Suspect]
     Active Substance: LAMOTRIGINE
     Indication: Bipolar disorder
     Dosage: 100 MG, QD
     Route: 048
     Dates: start: 20210622, end: 20210719
  2. MELATONIN [Suspect]
     Active Substance: MELATONIN
     Indication: Sleep disorder
     Dosage: 2 MG, QD
     Route: 048
     Dates: start: 20210609, end: 20210720
  3. ATARAX (HYDROXYZINE DICHLORHYDRATE) [Concomitant]
     Indication: Product used for unknown indication
     Dosage: 25 MG (AS NECESSARY)
     Route: 048
  4. TERALITHE [Concomitant]
     Active Substance: LITHIUM CARBONATE
     Indication: Bipolar disorder
     Dosage: 800 MG, QD
     Route: 048
     Dates: start: 20210217
  5. KETAMINE [Concomitant]
     Active Substance: KETAMINE
     Indication: Depression
     Dosage: 0.5 MG/KG
     Route: 041
     Dates: start: 20210608, end: 20210622

REACTIONS (1)
  - Drug reaction with eosinophilia and systemic symptoms [Recovered/Resolved]

NARRATIVE: CASE EVENT DATE: 20210719
